FAERS Safety Report 13527532 (Version 2)
Quarter: 2017Q2

REPORT INFORMATION
  Report Type: Spontaneous
  Country: IT (occurrence: IT)
  Receive Date: 20170509
  Receipt Date: 20170526
  Transmission Date: 20170830
  Serious: No
  Sender: FDA-Public Use
  Company Number: IT-MYLANLABS-2017M1027273

PATIENT

DRUGS (2)
  1. DOXORUBICIN [Suspect]
     Active Substance: DOXORUBICIN
     Indication: PLEURAL NEOPLASM
     Dosage: 75 MG/M2, CYCLE
     Route: 040
  2. DACARBAZINE. [Suspect]
     Active Substance: DACARBAZINE
     Indication: PLEURAL NEOPLASM
     Dosage: 800 MG/M2, CYCLE
     Route: 042

REACTIONS (1)
  - Gamma-glutamyltransferase increased [Unknown]
